FAERS Safety Report 7326113-2 (Version None)
Quarter: 2011Q1

REPORT INFORMATION
  Report Type: 
  Country: None (occurrence: None)
  Receive Date: 20110302
  Receipt Date: 20110218
  Transmission Date: 20110831
  Serious: Yes (Disabling)
  Sender: FDA-Public Use
  Company Number: JP-AMGEN-JPNCT2011011380

PATIENT
  Age: 54 Year
  Sex: Male
  Weight: 89 kg

DRUGS (5)
  1. ANTIHISTAMINES [Concomitant]
     Indication: PROPHYLAXIS
     Dosage: UNK
     Route: 065
  2. RINDERON                           /00008501/ [Concomitant]
     Dosage: UNK
     Route: 048
  3. PANITUMUMAB [Suspect]
     Indication: COLORECTAL CANCER
     Dosage: 6 MG/KG, Q2WK
     Route: 041
     Dates: start: 20100805, end: 20101028
  4. CORTICOSTEROIDS [Concomitant]
     Indication: PROPHYLAXIS
     Dosage: UNK
     Route: 065
  5. PREDONINE [Concomitant]
     Dosage: UNK
     Route: 048

REACTIONS (5)
  - DERMATITIS ACNEIFORM [None]
  - LIVER DISORDER [None]
  - OROPHARYNGEAL DISCOMFORT [None]
  - COLORECTAL CANCER [None]
  - CONDITION AGGRAVATED [None]
